FAERS Safety Report 10592593 (Version 1)
Quarter: 2014Q4

REPORT INFORMATION
  Report Type: Spontaneous
  Country: US (occurrence: US)
  Receive Date: 20141119
  Receipt Date: 20141119
  Transmission Date: 20150529
  Serious: No
  Sender: FDA-Public Use
  Company Number: US-PFIZER INC-2014314512

PATIENT
  Age: 21 Month
  Sex: Male
  Weight: 9.8 kg

DRUGS (18)
  1. IVIG [Concomitant]
     Active Substance: HUMAN IMMUNOGLOBULIN G
     Dosage: UNK
     Route: 042
  2. SUCRALFATE. [Concomitant]
     Active Substance: SUCRALFATE
     Dosage: 2.5 ML, THREE TIMES DAILY
  3. RIFAMPIN. [Concomitant]
     Active Substance: RIFAMPIN
     Dosage: 95 MG, EVERY 12 HRS
  4. POLY-VI-FLOR [Concomitant]
     Dosage: 1 DF, DAILY
  5. MOXIFLOXACIN [Concomitant]
     Active Substance: MOXIFLOXACIN
     Dosage: 10 MG/KG, PER DAY
     Route: 042
  6. FLUCONAZOLE. [Suspect]
     Active Substance: FLUCONAZOLE
     Dosage: UNK
  7. IBUPROFEN. [Concomitant]
     Active Substance: IBUPROFEN
     Indication: PYREXIA
     Dosage: 90 MG, EVERY 6 HRS AS NEEDED
  8. CHLOROTHIAZIDE. [Concomitant]
     Active Substance: CHLOROTHIAZIDE
     Dosage: 43 MG, DAILY
  9. ISONIAZID. [Concomitant]
     Active Substance: ISONIAZID
     Dosage: 150 MG, DAILY
  10. FLUORIDE [Concomitant]
     Active Substance: SODIUM FLUORIDE
     Dosage: 5 ML, AT BED TIME
     Route: 061
  11. IBUPROFEN. [Concomitant]
     Active Substance: IBUPROFEN
     Indication: PREMEDICATION
  12. CLARITHROMYCIN. [Concomitant]
     Active Substance: CLARITHROMYCIN
     Dosage: 150 MG, DAILY
  13. CHOLECALCIFEROL [Concomitant]
     Active Substance: CHOLECALCIFEROL
     Dosage: 2000 IU, DAILY
  14. MICAFUNGIN [Concomitant]
     Active Substance: MICAFUNGIN
     Dosage: 2 MG/KG, PER DAY
     Route: 042
  15. BACTRIM [Concomitant]
     Active Substance: SULFAMETHOXAZOLE\TRIMETHOPRIM
     Dosage: 50 MG, TWICE DAILY ON MONDAYS, WEDNESDAYS AND FRIDAYS
  16. LANSOPRAZOLE. [Concomitant]
     Active Substance: LANSOPRAZOLE
     Dosage: 15 MG, DAILY
  17. ALBUTEROL. [Concomitant]
     Active Substance: ALBUTEROL
     Indication: WHEEZING
     Dosage: UNK, AS NEEDED
  18. CHLORHEXIDINE [Concomitant]
     Active Substance: CHLORHEXIDINE
     Dosage: 15 ML, FOUR TIMES DAILY

REACTIONS (1)
  - Transaminases increased [Unknown]
